FAERS Safety Report 6883713-1 (Version None)
Quarter: 2010Q3

REPORT INFORMATION
  Report Type: 
  Country: None (occurrence: None)
  Receive Date: 20100729
  Receipt Date: 20100726
  Transmission Date: 20110219
  Serious: Yes (Congenital Anomaly)
  Sender: FDA-Public Use
  Company Number: A0872378A

PATIENT
  Sex: Female

DRUGS (7)
  1. COMBIVIR [Suspect]
     Indication: HIV INFECTION
     Dates: start: 20040630, end: 20050909
  2. VIDEX [Suspect]
     Indication: HIV INFECTION
     Dates: start: 20060104
  3. VIRACEPT [Suspect]
     Indication: HIV INFECTION
     Dates: start: 20040630, end: 20050909
  4. VIRACEPT [Suspect]
     Dates: start: 20060104
  5. FERROUS SULFATE [Concomitant]
  6. FOLINIC ACID [Concomitant]
  7. SULFAMETHOXAZOLE [Concomitant]

REACTIONS (2)
  - DRUG EXPOSURE DURING PREGNANCY [None]
  - PULMONARY ARTERY STENOSIS [None]
